FAERS Safety Report 4957380-8 (Version None)
Quarter: 2006Q1

REPORT INFORMATION
  Report Type: 
  Country: None (occurrence: None)
  Receive Date: 20060327
  Receipt Date: 20060323
  Transmission Date: 20060701
  Serious: Yes (Disabling, Other)
  Sender: FDA-Public Use
  Company Number: USA-2004-0013261

PATIENT
  Age: 49 Year
  Sex: Female

DRUGS (3)
  1. OXYCONTIN [Suspect]
     Indication: PAIN
     Dosage: SEE IMAGE
     Route: 065
  2. IMITREX [Concomitant]
  3. NEXIUM [Concomitant]

REACTIONS (61)
  - ABDOMINAL PAIN [None]
  - ALOPECIA [None]
  - ANXIETY [None]
  - ARTHRALGIA [None]
  - BACK PAIN [None]
  - BURNING SENSATION [None]
  - CONSTIPATION [None]
  - COUGH [None]
  - DECREASED ACTIVITY [None]
  - DECREASED APPETITE [None]
  - DELUSIONAL DISORDER, UNSPECIFIED TYPE [None]
  - DENTAL CARIES [None]
  - DEPRESSION [None]
  - DERMATITIS [None]
  - DERMATITIS CONTACT [None]
  - DIARRHOEA [None]
  - DIFFICULTY IN WALKING [None]
  - DISTURBANCE IN ATTENTION [None]
  - DRUG DEPENDENCE [None]
  - DRUG INEFFECTIVE [None]
  - DRUG TOLERANCE [None]
  - DRUG WITHDRAWAL SYNDROME [None]
  - DYSPEPSIA [None]
  - FACET JOINT SYNDROME [None]
  - FAMILY STRESS [None]
  - GAIT DISTURBANCE [None]
  - GASTRITIS [None]
  - GASTROOESOPHAGEAL REFLUX DISEASE [None]
  - HEADACHE [None]
  - HOT FLUSH [None]
  - HYPERACUSIS [None]
  - HYPERTENSION [None]
  - HYPOTHYROIDISM [None]
  - INADEQUATE ANALGESIA [None]
  - INSOMNIA [None]
  - INTERVERTEBRAL DISC DEGENERATION [None]
  - IRRITABILITY [None]
  - JOINT INJURY [None]
  - LETHARGY [None]
  - LYMPHADENOPATHY [None]
  - MENTAL DISORDER [None]
  - MIGRAINE [None]
  - MUSCULOSKELETAL CHEST PAIN [None]
  - NECK PAIN [None]
  - OBSESSIVE-COMPULSIVE DISORDER [None]
  - OSTEOPOROSIS [None]
  - OVERDOSE [None]
  - PAIN [None]
  - PAIN IN EXTREMITY [None]
  - PARANOIA [None]
  - PHOTOPHOBIA [None]
  - POLLAKIURIA [None]
  - PRURITUS [None]
  - PURULENCE [None]
  - RHINITIS [None]
  - SHOULDER PAIN [None]
  - SKIN HYPOPIGMENTATION [None]
  - SPINAL DISORDER [None]
  - SUICIDE ATTEMPT [None]
  - VAGINAL INFECTION [None]
  - VOMITING [None]
